FAERS Safety Report 11180823 (Version 1)
Quarter: 2015Q2

REPORT INFORMATION
  Report Type: Spontaneous
  Country: US (occurrence: None)
  Receive Date: 20150610
  Receipt Date: 20150610
  Transmission Date: 20150821
  Serious: No
  Sender: FDA-Public Use
  Company Number: None

PATIENT
  Age: 75 Year
  Sex: Female
  Weight: 225 kg

DRUGS (9)
  1. OMNICEF [Suspect]
     Active Substance: CEFDINIR
     Indication: UPPER RESPIRATORY TRACT INFECTION
     Dosage: 300 MG 14-7 DAY SUPPLY TWICE DAILY BY MOUTH
     Route: 048
     Dates: start: 20150506, end: 20150509
  2. ATORVASTATIN [Concomitant]
     Active Substance: ATORVASTATIN
  3. METOPROLOL [Concomitant]
     Active Substance: METOPROLOL
  4. OMNICEF [Suspect]
     Active Substance: CEFDINIR
     Indication: EAR INFECTION
     Dosage: 300 MG 14-7 DAY SUPPLY TWICE DAILY BY MOUTH
     Route: 048
     Dates: start: 20150506, end: 20150509
  5. FISH OIL [Concomitant]
     Active Substance: FISH OIL
  6. PRO BIOTIC 10 [Concomitant]
  7. HYDROCHLOROTHIAZIDE. [Concomitant]
     Active Substance: HYDROCHLOROTHIAZIDE
  8. KLOR-CO 10 (POTASSIUM) [Concomitant]
  9. D3 (VIT D) [Concomitant]

REACTIONS (4)
  - Presyncope [None]
  - Liver injury [None]
  - Asthenia [None]
  - Diarrhoea [None]

NARRATIVE: CASE EVENT DATE: 20150506
